FAERS Safety Report 6498207-5 (Version None)
Quarter: 2009Q4

REPORT INFORMATION
  Report Type: 
  Country: None (occurrence: None)
  Receive Date: 20091215
  Receipt Date: 20091209
  Transmission Date: 20100525
  Serious: Yes (Other)
  Sender: FDA-Public Use
  Company Number: A0834412A

PATIENT
  Age: 66 Year
  Sex: Male

DRUGS (1)
  1. AVODART [Suspect]
     Indication: DRUG USE FOR UNKNOWN INDICATION
     Dosage: 1CAP PER DAY
     Route: 065
     Dates: start: 20091201, end: 20091209

REACTIONS (7)
  - CELLULITIS [None]
  - DERMATITIS ALLERGIC [None]
  - EAR PRURITUS [None]
  - ERYTHEMA [None]
  - GLOSSODYNIA [None]
  - PAIN [None]
  - SWELLING FACE [None]
